FAERS Safety Report 7007482-X (Version None)
Quarter: 2010Q3

REPORT INFORMATION
  Report Type: 
  Country: None (occurrence: None)
  Receive Date: 20100914
  Receipt Date: 20100902
  Transmission Date: 20110219
  Serious: Yes (Other)
  Sender: FDA-Public Use
  Company Number: 2010SP047166

PATIENT
  Sex: Female

DRUGS (1)
  1. IMPLANON [Suspect]
     Indication: PRODUCT USED FOR UNKNOWN INDICATION
     Dosage: 1 DF;
     Dates: start: 20060101

REACTIONS (4)
  - DEVICE DIFFICULT TO USE [None]
  - DEVICE DISLOCATION [None]
  - IATROGENIC INJURY [None]
  - ULNAR NERVE INJURY [None]
